FAERS Safety Report 6991549-6 (Version None)
Quarter: 2010Q3

REPORT INFORMATION
  Report Type: 
  Country: None (occurrence: None)
  Receive Date: 20100917
  Receipt Date: 20100909
  Transmission Date: 20110219
  Serious: No
  Sender: FDA-Public Use
  Company Number: US-BIOGENIDEC-2010BI026180

PATIENT
  Sex: Female

DRUGS (2)
  1. TYSABRI [Suspect]
     Indication: MULTIPLE SCLEROSIS
     Route: 042
     Dates: start: 20100618
  2. COPAXONE [Concomitant]
     Indication: MULTIPLE SCLEROSIS RELAPSE
     Dates: start: 20100501

REACTIONS (3)
  - HEADACHE [None]
  - STRESS [None]
  - URTICARIA [None]
